FAERS Safety Report 4546560-1 (Version None)
Quarter: 2005Q1

REPORT INFORMATION
  Report Type: 
  Country: None (occurrence: None)
  Receive Date: 20050103
  Receipt Date: 20041221
  Transmission Date: 20050727
  Serious: Yes (Other)
  Sender: FDA-Public Use
  Company Number: CIP04002744

PATIENT

DRUGS (2)
  1. DIDRONEL [Suspect]
     Indication: OSTEOPOROSIS
     Dosage: ORAL
     Route: 048
  2. DRUG NOS. [Suspect]

REACTIONS (23)
  - BLINDNESS [None]
  - BLINDNESS TRANSIENT [None]
  - CATARACT [None]
  - CONJUNCTIVITIS [None]
  - CORNEAL OPACITY [None]
  - CORNEAL ULCER [None]
  - DIPLOPIA [None]
  - EPISCLERITIS [None]
  - EYE INFLAMMATION [None]
  - EYE PAIN [None]
  - GLAUCOMA [None]
  - KERATITIS [None]
  - LACRIMAL DISORDER [None]
  - MACULAR DEGENERATION [None]
  - PAPILLOEDEMA [None]
  - PHOTOPSIA [None]
  - RETINAL DETACHMENT [None]
  - RETINAL DISORDER [None]
  - RETINITIS [None]
  - SCLERITIS [None]
  - UVEITIS [None]
  - VISUAL DISTURBANCE [None]
  - VITREOUS DETACHMENT [None]
